FAERS Safety Report 15337219 (Version 1)
Quarter: 2018Q3

REPORT INFORMATION
  Report Type: Spontaneous
  Country: US (occurrence: US)
  Receive Date: 20180827
  Receipt Date: 20180827
  Transmission Date: 20181010
  Serious: Yes (Hospitalization, Other)
  Sender: FDA-Public Use
  Company Number: None

PATIENT
  Age: 56 Year
  Sex: Female
  Weight: 65.25 kg

DRUGS (1)
  1. LISINOPRIL AND HYDROCHLOROTHIAZIDE [Suspect]
     Active Substance: HYDROCHLOROTHIAZIDE\LISINOPRIL
     Indication: HYPERTENSION
     Dosage: ?          QUANTITY:30 TABLET(S);?
     Route: 048

REACTIONS (9)
  - Cough [None]
  - Rash [None]
  - Urticaria [None]
  - Hypoaesthesia [None]
  - Angioedema [None]
  - Dizziness [None]
  - Peripheral swelling [None]
  - Tremor [None]
  - Drug hypersensitivity [None]

NARRATIVE: CASE EVENT DATE: 20180622
